FAERS Safety Report 9631562 (Version 1)
Quarter: 2013Q4

REPORT INFORMATION
  Report Type: Spontaneous
  Country: DE (occurrence: None)
  Receive Date: 20131003
  Receipt Date: 20131003
  Transmission Date: 20140711
  Serious: Yes (Hospitalization)
  Sender: FDA-Public Use
  Company Number: 2013038148

PATIENT
  Age: 74 Year
  Sex: Female

DRUGS (3)
  1. HAEMATE P [Suspect]
     Indication: VON WILLEBRAND^S DISEASE
     Dates: start: 20130117, end: 20130126
  2. NOVOSEN/01034101/FACTOR VII (PROCONVERTIN) [Concomitant]
  3. TAUROLIDINE (TAUROLIDINE) [Concomitant]

REACTIONS (2)
  - Device occlusion [None]
  - Drug interaction [None]
